FAERS Safety Report 7969119-2 (Version None)
Quarter: 2011Q4

REPORT INFORMATION
  Report Type: 
  Country: None (occurrence: None)
  Receive Date: 20111209
  Receipt Date: 20111208
  Transmission Date: 20120403
  Serious: Yes (Death, Hospitalization)
  Sender: FDA-Public Use
  Company Number: NL-ROCHE-1007078

PATIENT
  Sex: Male

DRUGS (5)
  1. OXALIPLATIN [Suspect]
     Indication: COLORECTAL CANCER
     Dosage: LAST DOSE: 29-OCT-2009
     Route: 042
     Dates: start: 20090423
  2. FUROSEMIDE [Concomitant]
  3. AVASTIN [Suspect]
     Indication: COLORECTAL CANCER
     Dosage: LAST DOSE: 17-AUG-2011
     Route: 042
     Dates: start: 20090423
  4. XELODA [Suspect]
     Indication: COLORECTAL CANCER
     Dosage: LAST DOSE: 17-AUG-2011
     Route: 048
     Dates: start: 20090423
  5. LOPERAMIDE HCL [Concomitant]

REACTIONS (6)
  - DIARRHOEA [None]
  - DELIRIUM [None]
  - URINARY TRACT INFECTION [None]
  - CONFUSIONAL STATE [None]
  - SOMNOLENCE [None]
  - DEATH [None]
